FAERS Safety Report 23581976 (Version 1)
Quarter: 2024Q1

REPORT INFORMATION
  Report Type: Spontaneous
  Country: US (occurrence: US)
  Receive Date: 20240229
  Receipt Date: 20240229
  Transmission Date: 20240409
  Serious: No
  Sender: FDA-Public Use
  Company Number: US-EPIHEALTH-2023-US-043492

PATIENT
  Sex: 0

DRUGS (2)
  1. WYNZORA [Suspect]
     Active Substance: BETAMETHASONE DIPROPIONATE\CALCIPOTRIENE
     Indication: Psoriasis
     Route: 065
  2. BRODALUMAB [Suspect]
     Active Substance: BRODALUMAB
     Route: 065

REACTIONS (1)
  - Psoriasis [Recovered/Resolved]
